FAERS Safety Report 24758783 (Version 1)
Quarter: 2024Q4

REPORT INFORMATION
  Report Type: Spontaneous
  Country: US (occurrence: None)
  Receive Date: 20241219
  Receipt Date: 20241219
  Transmission Date: 20250114
  Serious: Yes (Hospitalization)
  Sender: Public
  Company Number: None

PATIENT
  Age: 68 Year
  Sex: Female
  Weight: 76.2 kg

DRUGS (2)
  1. PHESGO [Suspect]
     Active Substance: HYALURONIDASE-ZZXF\PERTUZUMAB\TRASTUZUMAB
     Route: 041
     Dates: end: 20241202
  2. LETROZOLE [Suspect]
     Active Substance: LETROZOLE

REACTIONS (2)
  - Aortic valve replacement [None]
  - Treatment delayed [None]

NARRATIVE: CASE EVENT DATE: 20241218
